FAERS Safety Report 18310720 (Version 1)
Quarter: 2020Q3

REPORT INFORMATION
  Report Type: Spontaneous
  Country: AT (occurrence: AT)
  Receive Date: 20200925
  Receipt Date: 20200925
  Transmission Date: 20201103
  Serious: Yes (Other)
  Sender: FDA-Public Use
  Company Number: AT-TEVA-2020-AT-1831802

PATIENT
  Age: 6 Decade
  Sex: Female

DRUGS (1)
  1. TOPIRAMATE. [Suspect]
     Active Substance: TOPIRAMATE
     Route: 065

REACTIONS (4)
  - Drug ineffective [Unknown]
  - Hypoaesthesia [Unknown]
  - Amnesia [Unknown]
  - Transient ischaemic attack [Unknown]
